FAERS Safety Report 9588318 (Version 1)
Quarter: 2013Q4

REPORT INFORMATION
  Report Type: Spontaneous
  Country: US (occurrence: US)
  Receive Date: 20131003
  Receipt Date: 20131003
  Transmission Date: 20140711
  Serious: No
  Sender: FDA-Public Use
  Company Number: US-AMGEN-USASP2012063669

PATIENT
  Sex: Female
  Weight: 73.92 kg

DRUGS (9)
  1. ENBREL [Suspect]
     Indication: RHEUMATOID ARTHRITIS
     Dosage: 50 MG, QWK
     Route: 058
  2. PLAQUENIL                          /00072602/ [Concomitant]
     Dosage: 200 MG, UNK
  3. CRESTOR [Concomitant]
     Dosage: 20 MG, UNK
  4. METHOTREXATE [Concomitant]
     Dosage: 2.5 MG, UNK
  5. TRILIPIX [Concomitant]
     Dosage: 45 MG, UNK
  6. SPIRONOLACTON [Concomitant]
     Dosage: 100 MG, UNK
  7. FOLIC ACID [Concomitant]
     Dosage: 5 MG, UNK
  8. D3 [Concomitant]
     Dosage: 2000 UNIT, UNK
  9. B 12 [Concomitant]
     Dosage: 1 MG, UNK

REACTIONS (1)
  - Injection site pain [Unknown]
